FAERS Safety Report 4433262-5 (Version None)
Quarter: 2004Q3

REPORT INFORMATION
  Report Type: 
  Country: None (occurrence: None)
  Receive Date: 20040824
  Receipt Date: 20040806
  Transmission Date: 20050211
  Serious: Yes (Other)
  Sender: FDA-Public Use
  Company Number: B0342406A

PATIENT
  Age: 49 Year
  Sex: Female

DRUGS (3)
  1. RETROVIR [Suspect]
  2. DIDANOSINE (FORMULATION UNKNOWN) (DIDANOSINE) [Suspect]
  3. STAVUDINE (FORMULATION UNKNOWN) (STAVUDINE) [Suspect]

REACTIONS (8)
  - ABDOMINAL PAIN [None]
  - ASTHENIA [None]
  - DENERVATION ATROPHY [None]
  - LACTIC ACIDOSIS [None]
  - NAUSEA [None]
  - NEUROMYOPATHY [None]
  - PERIPHERAL SENSORIMOTOR NEUROPATHY [None]
  - VOMITING [None]
